FAERS Safety Report 7367018-0 (Version None)
Quarter: 2011Q1

REPORT INFORMATION
  Report Type: 
  Country: None (occurrence: None)
  Receive Date: 20110322
  Receipt Date: 20110309
  Transmission Date: 20110831
  Serious: Yes (Hospitalization)
  Sender: FDA-Public Use
  Company Number: US-JNJFOC-20110304519

PATIENT
  Sex: Female
  Weight: 85.73 kg

DRUGS (4)
  1. ZETIA [Concomitant]
     Indication: BLOOD CHOLESTEROL
     Route: 048
  2. REMICADE [Suspect]
     Indication: CROHN'S DISEASE
     Route: 042
  3. SYMBYAX [Concomitant]
     Indication: ANXIETY
     Route: 048
  4. OXYCODONE [Concomitant]
     Indication: CROHN'S DISEASE
     Route: 048

REACTIONS (2)
  - CHOLECYSTECTOMY [None]
  - ARTHRALGIA [None]
